FAERS Safety Report 22111874 (Version 17)
Quarter: 2024Q2

REPORT INFORMATION
  Report Type: Spontaneous
  Country: CA (occurrence: CA)
  Receive Date: 20230318
  Receipt Date: 20240522
  Transmission Date: 20240715
  Serious: Yes (Other)
  Sender: FDA-Public Use
  Company Number: CA-CELLTRION INC.-2022CA021707

PATIENT

DRUGS (16)
  1. INFLECTRA [Suspect]
     Active Substance: INFLIXIMAB-DYYB
     Indication: Crohn^s disease
     Dosage: 5 MG/KG, (WEEKS 0, 2, 6, THEN EVERY 4 WEEKS)
     Route: 042
     Dates: start: 20221128
  2. INFLECTRA [Suspect]
     Active Substance: INFLIXIMAB-DYYB
     Dosage: 5 MG/KG, (INDUCTION AT WEEKS 0, 2, 6, THEN EVERY 4 WEEKS)
     Route: 042
     Dates: start: 20230113
  3. INFLECTRA [Suspect]
     Active Substance: INFLIXIMAB-DYYB
     Dosage: 5 MG/KG (300MG), (EVERY 4 WEEKS)
     Route: 042
     Dates: start: 20230210
  4. INFLECTRA [Suspect]
     Active Substance: INFLIXIMAB-DYYB
     Dosage: 5 MG/KG, (EVERY 4 WEEKS)
     Route: 042
     Dates: start: 20230407
  5. INFLECTRA [Suspect]
     Active Substance: INFLIXIMAB-DYYB
     Dosage: 5 MG/KG, (EVERY 4 WEEKS)
     Route: 042
     Dates: start: 20230505
  6. INFLECTRA [Suspect]
     Active Substance: INFLIXIMAB-DYYB
     Dosage: 5 MG/KG (300MG),  (EVERY 4 WEEKS)
     Route: 042
     Dates: start: 20230602
  7. INFLECTRA [Suspect]
     Active Substance: INFLIXIMAB-DYYB
     Dosage: 5 MG/KG (300MG), (EVERY 4 WEEKS)
     Route: 042
     Dates: start: 20230629
  8. INFLECTRA [Suspect]
     Active Substance: INFLIXIMAB-DYYB
     Dosage: 5 MG/KG, (INDUCTION AT WEEKS 0, 2, 6, THEN EVERY 4 WEEKS)
     Route: 042
     Dates: start: 20230825
  9. INFLECTRA [Suspect]
     Active Substance: INFLIXIMAB-DYYB
     Dosage: 5 MG/KG (300MG), ( INDUCTION AT WEEKS 0, 2, 6, THEN EVERY 4 WEEKS)
     Route: 042
     Dates: start: 20230922
  10. INFLECTRA [Suspect]
     Active Substance: INFLIXIMAB-DYYB
     Dosage: 5 MG/KG (300MG), ( INDUCTION AT WEEKS 0, 2, 6, THEN EVERY 4 WEEKS)
     Route: 042
     Dates: start: 20231023
  11. INFLECTRA [Suspect]
     Active Substance: INFLIXIMAB-DYYB
     Dosage: 5 MG/KG (300MG)
     Route: 042
     Dates: start: 20231124
  12. INFLECTRA [Suspect]
     Active Substance: INFLIXIMAB-DYYB
     Dosage: 5 MG/KG Q 0,2,6 THEN EVERY 4 WEEKS (DOSAGE ADMINISTERED: NA MG, 8 WEEKS)
     Route: 042
     Dates: start: 20240119
  13. INFLECTRA [Suspect]
     Active Substance: INFLIXIMAB-DYYB
     Dosage: 5 MG/KG, Q 0,2,6 THEN EVERY 4 WEEKS  (100 MG (OR 30 ML), 3 WEEKS AND 5 DAYS)
     Route: 042
     Dates: start: 20240214
  14. INFLECTRA [Suspect]
     Active Substance: INFLIXIMAB-DYYB
     Dosage: 5 MG/KG, Q 0,2,6 THEN EVERY 4 WEEKS (NOT PROVIDED, AFTER 4 WEEKS AND 2 DAYS)
     Route: 042
     Dates: start: 20240315
  15. INFLECTRA [Suspect]
     Active Substance: INFLIXIMAB-DYYB
     Dosage: 5 MG/KG AT 0,2,6 THEN EVERY 4 WEEKS (300 MG, 4 WEEKS)
     Route: 042
     Dates: start: 20240510
  16. PREDNISONE [Concomitant]
     Active Substance: PREDNISONE
     Dosage: UNK

REACTIONS (12)
  - Fall [Not Recovered/Not Resolved]
  - Wrist fracture [Not Recovered/Not Resolved]
  - Skin abrasion [Not Recovered/Not Resolved]
  - Pain [Unknown]
  - Blood pressure diastolic decreased [Not Recovered/Not Resolved]
  - Insomnia [Not Recovered/Not Resolved]
  - Blood pressure systolic increased [Not Recovered/Not Resolved]
  - Blood pressure fluctuation [Unknown]
  - Off label use [Unknown]
  - Incorrect dose administered [Unknown]
  - Inappropriate schedule of product administration [Unknown]
  - Heart rate decreased [Recovering/Resolving]

NARRATIVE: CASE EVENT DATE: 20221128
